FAERS Safety Report 4689260-X (Version None)
Quarter: 2005Q2

REPORT INFORMATION
  Report Type: 
  Country: None (occurrence: None)
  Receive Date: 20050613
  Receipt Date: 20050310
  Transmission Date: 20051028
  Serious: Yes (Hospitalization)
  Sender: FDA-Public Use
  Company Number: US-MERCK-0503USA02098

PATIENT
  Age: 43 Year
  Sex: Male
  Weight: 95 kg

DRUGS (2)
  1. VIOXX [Suspect]
     Indication: ARTHRITIS
     Route: 048
     Dates: start: 20020501, end: 20040223
  2. VIOXX [Suspect]
     Indication: ARTHRALGIA
     Route: 048
     Dates: start: 20020501, end: 20040223

REACTIONS (43)
  - ACUTE MYOCARDIAL INFARCTION [None]
  - ANGINA UNSTABLE [None]
  - ANXIETY [None]
  - ARRHYTHMIA [None]
  - ATELECTASIS [None]
  - BLOOD PRESSURE INCREASED [None]
  - BLOOD TRIGLYCERIDES INCREASED [None]
  - BURNING SENSATION [None]
  - CARDIOMEGALY [None]
  - CHEST PAIN [None]
  - CHRONIC OBSTRUCTIVE PULMONARY DISEASE [None]
  - CONTUSION [None]
  - CORONARY ARTERY DISEASE [None]
  - CORONARY ARTERY OCCLUSION [None]
  - DEPRESSION [None]
  - DIZZINESS [None]
  - DYSPEPSIA [None]
  - EJECTION FRACTION DECREASED [None]
  - ELECTROCARDIOGRAM ST-T CHANGE [None]
  - EMOTIONAL DISTRESS [None]
  - EYE INJURY [None]
  - GANGLION [None]
  - HAEMATOMA [None]
  - HEADACHE [None]
  - HEART RATE ABNORMAL [None]
  - HYPERLIPIDAEMIA [None]
  - HYPERTENSION [None]
  - HYPOAESTHESIA [None]
  - HYPOXIA [None]
  - INCISION SITE COMPLICATION [None]
  - LIVER FUNCTION TEST ABNORMAL [None]
  - MENTAL DISORDER [None]
  - MITRAL VALVE DISEASE [None]
  - NERVE COMPRESSION [None]
  - PULMONARY EMBOLISM [None]
  - RADICULOPATHY [None]
  - RASH PRURITIC [None]
  - SLEEP APNOEA SYNDROME [None]
  - SLEEP DISORDER [None]
  - SYNCOPE [None]
  - THROMBOPHLEBITIS SUPERFICIAL [None]
  - VENTRICULAR DYSFUNCTION [None]
  - VENTRICULAR HYPOKINESIA [None]
